FAERS Safety Report 6371485-9 (Version None)
Quarter: 2009Q3

REPORT INFORMATION
  Report Type: 
  Country: None (occurrence: None)
  Receive Date: 20090923
  Receipt Date: 20071203
  Transmission Date: 20100115
  Serious: Yes (Hospitalization, Other)
  Sender: FDA-Public Use
  Company Number: US-ASTRAZENECA-2007UW14351

PATIENT
  Age: 385 Month
  Sex: Male
  Weight: 122.5 kg

DRUGS (27)
  1. SEROQUEL [Suspect]
     Indication: SLEEP DISORDER
     Route: 048
     Dates: start: 20031201, end: 20051201
  2. SEROQUEL [Suspect]
     Route: 048
     Dates: start: 20041015
  3. GLUCOPHAGE [Concomitant]
     Route: 048
  4. ZESTRIL [Concomitant]
     Route: 048
  5. GLYBURIDE [Concomitant]
     Route: 048
  6. LITHIUM [Concomitant]
     Route: 065
  7. ZOLOFT [Concomitant]
     Dosage: 100 MG-150 MG
     Route: 048
  8. SALBUTAMOL [Concomitant]
     Route: 065
  9. LORATADINE [Concomitant]
     Route: 048
  10. NIZATIDINE [Concomitant]
     Route: 048
  11. PHENERGAN [Concomitant]
     Dosage: 12.5 -25MG
     Route: 042
  12. IMITREX [Concomitant]
     Route: 048
  13. ABILIFY [Concomitant]
     Dosage: 10MG -20 MG
     Route: 048
  14. VICODIN [Concomitant]
     Indication: PAIN
     Route: 048
  15. DEMEROL [Concomitant]
     Dosage: 25MG - 50 MG
     Route: 042
  16. LEXAPRO [Concomitant]
     Route: 065
  17. RISPERDAL [Concomitant]
     Route: 065
  18. VALIUM [Concomitant]
     Route: 042
  19. TORADOL [Concomitant]
     Route: 042
  20. LOPID [Concomitant]
     Route: 048
  21. PAROXETINE HCL [Concomitant]
     Route: 065
  22. MORPHINE [Concomitant]
     Dosage: 2MG -5 MG
     Route: 065
  23. DROPERIDOL [Concomitant]
     Route: 042
  24. FENTANYL [Concomitant]
     Route: 042
  25. INSULIN [Concomitant]
     Route: 065
  26. CODEINE SULFATE [Concomitant]
     Route: 065
  27. WELLBUTRIN [Concomitant]
     Route: 065

REACTIONS (3)
  - HYPERGLYCAEMIA [None]
  - PANCREATITIS ACUTE [None]
  - TYPE 2 DIABETES MELLITUS [None]
